FAERS Safety Report 14535775 (Version 3)
Quarter: 2018Q1

REPORT INFORMATION
  Report Type: Report from Study
  Country: CO (occurrence: CO)
  Receive Date: 20180215
  Receipt Date: 20180313
  Transmission Date: 20180509
  Serious: Yes (Hospitalization, Other)
  Sender: FDA-Public Use
  Company Number: CO-INCYTE CORPORATION-2017IN009218

PATIENT

DRUGS (2)
  1. JAKAVI [Suspect]
     Active Substance: RUXOLITINIB
     Indication: POLYCYTHAEMIA VERA
     Dosage: 10 MG, TID
     Route: 048
     Dates: start: 20170815
  2. ACETYLSALICYLIC ACID [Concomitant]
     Active Substance: ASPIRIN
     Indication: PRODUCT USED FOR UNKNOWN INDICATION
     Route: 065

REACTIONS (17)
  - Red blood cell count increased [Recovering/Resolving]
  - Back pain [Recovering/Resolving]
  - Epistaxis [Unknown]
  - Intervertebral disc calcification [Unknown]
  - White blood cell count increased [Recovering/Resolving]
  - Feeling abnormal [Unknown]
  - Paralysis [Unknown]
  - Hypokinesia [Unknown]
  - Haemoglobin increased [Recovering/Resolving]
  - Musculoskeletal stiffness [Unknown]
  - Restless legs syndrome [Unknown]
  - Drug prescribing error [Unknown]
  - Gait disturbance [Recovered/Resolved]
  - Headache [Unknown]
  - Pain in extremity [Unknown]
  - Skin haemorrhage [Unknown]
  - Platelet count increased [Recovering/Resolving]

NARRATIVE: CASE EVENT DATE: 20171004
